FAERS Safety Report 7989228-1 (Version None)
Quarter: 2011Q4

REPORT INFORMATION
  Report Type: 
  Country: None (occurrence: None)
  Receive Date: 20111007
  Receipt Date: 20110616
  Transmission Date: 20120403
  Serious: No
  Sender: FDA-Public Use
  Company Number: 2011HGS-002357

PATIENT
  Age: 23 Year
  Sex: Male
  Weight: 102.0593 kg

DRUGS (3)
  1. PREDNISONE [Concomitant]
  2. BENLYSTA [Suspect]
     Indication: SYSTEMIC LUPUS ERYTHEMATOSUS
     Dosage: 10 MG/K2, 1 IN 28 D, INTRAVENOUS DRIP
     Route: 041
     Dates: start: 20110615
  3. HYDROCODONE (HYDROCODONE) (HYDROCODONE) [Concomitant]

REACTIONS (9)
  - BODY TEMPERATURE INCREASED [None]
  - ABDOMINAL PAIN [None]
  - ARTHRALGIA [None]
  - MUSCULOSKELETAL DISCOMFORT [None]
  - ABDOMINAL TENDERNESS [None]
  - JOINT STIFFNESS [None]
  - GAIT DISTURBANCE [None]
  - PAIN IN EXTREMITY [None]
  - ABDOMINAL DISCOMFORT [None]
